FAERS Safety Report 8549304-1 (Version None)
Quarter: 2012Q3

REPORT INFORMATION
  Report Type: 
  Country: None (occurrence: None)
  Receive Date: 20120720
  Receipt Date: 20120720
  Transmission Date: 20120928
  Serious: Yes (Hospitalization)
  Sender: FDA-Public Use
  Company Number: None

PATIENT
  Sex: Female
  Weight: 84.6 kg

DRUGS (2)
  1. ZOLEDRONIC ACID [Suspect]
     Indication: OSTEOPENIA
     Dosage: 5 MG ONCE YEARLY IV
     Route: 042
     Dates: start: 20101001, end: 20101001
  2. ZOLEDRONIC ACID [Suspect]
     Indication: OSTEOPENIA
     Dosage: 5 MG ONCE YEARLY IV
     Route: 042
     Dates: start: 20120618, end: 20120618

REACTIONS (4)
  - FATIGUE [None]
  - INSOMNIA [None]
  - RENAL FAILURE ACUTE [None]
  - POLLAKIURIA [None]
